FAERS Safety Report 15962348 (Version 1)
Quarter: 2019Q1

REPORT INFORMATION
  Report Type: Spontaneous
  Country: US (occurrence: US)
  Receive Date: 20190214
  Receipt Date: 20190214
  Transmission Date: 20190417
  Serious: Yes (Hospitalization)
  Sender: FDA-Public Use
  Company Number: US-PFIZER INC-2019060118

PATIENT
  Age: 56 Year
  Sex: Female
  Weight: 109 kg

DRUGS (1)
  1. XELJANZ XR [Suspect]
     Active Substance: TOFACITINIB CITRATE
     Indication: RHEUMATOID ARTHRITIS
     Dosage: 11 MG, 1X/DAY
     Route: 048
     Dates: end: 201812

REACTIONS (3)
  - Adhesion [Unknown]
  - Malaise [Unknown]
  - Ovarian mass [Unknown]

NARRATIVE: CASE EVENT DATE: 201901
